FAERS Safety Report 8558332-1 (Version None)
Quarter: 2012Q3

REPORT INFORMATION
  Report Type: 
  Country: None (occurrence: None)
  Receive Date: 20120801
  Receipt Date: 20120730
  Transmission Date: 20120928
  Serious: No
  Sender: FDA-Public Use
  Company Number: US-BAYER-2012-076822

PATIENT
  Age: 81 Year
  Sex: Female
  Weight: 66.213 kg

DRUGS (10)
  1. LOVAZA [Concomitant]
  2. CITRACAL [Concomitant]
  3. NIFEDIPINE [Concomitant]
  4. MULTIVITE [VITAMINS NOS] [Concomitant]
  5. ASPIRIN [Concomitant]
     Indication: CORONARY ARTERY DISEASE
  6. LIPITOR [Concomitant]
  7. NITROGLYCERIN [Concomitant]
  8. PHILLIPS' COLON HEALTH [Suspect]
     Dosage: ONCE DAILY WITH FOOD
     Route: 048
     Dates: start: 20120728, end: 20120728
  9. FLUTICASONE FUROATE [Concomitant]
  10. TOPROL-XL [Concomitant]

REACTIONS (1)
  - CONSTIPATION [None]
